FAERS Safety Report 7701120-6 (Version None)
Quarter: 2011Q3

REPORT INFORMATION
  Report Type: 
  Country: None (occurrence: None)
  Receive Date: 20110817
  Receipt Date: 20110804
  Transmission Date: 20111222
  Serious: Yes (Other)
  Sender: FDA-Public Use
  Company Number: 2011-0489

PATIENT
  Age: 31 Year
  Sex: Male
  Weight: 92.1 kg

DRUGS (7)
  1. DOSTINEX [Concomitant]
  2. ANDROGEL [Concomitant]
  3. SOMATULINE DEPOT [Suspect]
     Indication: ACROMEGALY
     Dosage: 90 MG (90 MG, 1 IN 4 WK), SUBCUTANEOUS
     Route: 058
     Dates: start: 20080201
  4. SOMAVERT [Suspect]
     Indication: ACROMEGALY
     Dosage: 10 MG (10 MG, 1 IN 1 D), SUBCUTANEOUS
     Route: 058
     Dates: start: 20081001, end: 20100128
  5. SYNTHROID [Concomitant]
  6. TAMOXIFEN CITRATE [Concomitant]
  7. DDAVP [Concomitant]

REACTIONS (3)
  - HAEMANGIOMA OF LIVER [None]
  - ADRENAL ADENOMA [None]
  - CONDITION AGGRAVATED [None]
